FAERS Safety Report 15706809 (Version 3)
Quarter: 2019Q1

REPORT INFORMATION
  Report Type: Report from Study
  Country: GB (occurrence: GB)
  Receive Date: 20181210
  Receipt Date: 20190304
  Transmission Date: 20190417
  Serious: Yes (Death)
  Sender: FDA-Public Use
  Company Number: GB-ACTELION-A-NJ2018-183477

PATIENT
  Age: 54 Year
  Sex: Female

DRUGS (1)
  1. VENTAVIS [Suspect]
     Active Substance: ILOPROST
     Indication: PRODUCT USED FOR UNKNOWN INDICATION
     Route: 055

REACTIONS (2)
  - Device use issue [Unknown]
  - Death [Fatal]

NARRATIVE: CASE EVENT DATE: 20181201
